FAERS Safety Report 8358344-7 (Version None)
Quarter: 2012Q2

REPORT INFORMATION
  Report Type: 
  Country: None (occurrence: None)
  Receive Date: 20120514
  Receipt Date: 20110428
  Transmission Date: 20120825
  Serious: No
  Sender: FDA-Public Use
  Company Number: US-ALEXION-A201100611

PATIENT
  Sex: Female

DRUGS (5)
  1. MULTI-VITAMIN [Concomitant]
     Dosage: UNK
  2. FOLIC ACID [Concomitant]
     Dosage: UNK
     Route: 048
  3. SOLIRIS [Suspect]
     Dosage: 900 MG, Q2W
     Route: 042
     Dates: start: 20110525
  4. SOLIRIS [Suspect]
     Indication: PAROXYSMAL NOCTURNAL HAEMOGLOBINURIA
     Dosage: 600 MG, UNK
     Route: 042
     Dates: start: 20110427, end: 20110101
  5. IRON [Concomitant]
     Dosage: UNK
     Route: 048

REACTIONS (6)
  - DYSPNOEA EXERTIONAL [None]
  - NAUSEA [None]
  - PALATAL DISORDER [None]
  - CHEST DISCOMFORT [None]
  - FATIGUE [None]
  - HEADACHE [None]
